FAERS Safety Report 17753275 (Version 1)
Quarter: 2020Q2

REPORT INFORMATION
  Report Type: Spontaneous
  Country: US (occurrence: US)
  Receive Date: 20200506
  Receipt Date: 20200506
  Transmission Date: 20200714
  Serious: No
  Sender: FDA-Public Use
  Company Number: US-ROCHE-2534465

PATIENT
  Sex: Male
  Weight: 71 kg

DRUGS (7)
  1. MEVACOR [Concomitant]
     Active Substance: LOVASTATIN
     Route: 065
  2. LEVOTHYROXINE. [Concomitant]
     Active Substance: LEVOTHYROXINE
     Route: 065
  3. TIMOPTIC [Concomitant]
     Active Substance: TIMOLOL MALEATE
     Dosage: 0.5% GTT
     Route: 065
  4. COUMADIN [Concomitant]
     Active Substance: WARFARIN SODIUM
     Route: 065
  5. CARTIA XT [Concomitant]
     Active Substance: DILTIAZEM HYDROCHLORIDE
     Route: 065
  6. OMEGA 3 [DOCOSAHEXAENOIC ACID;EICOSAPENTAENOIC ACID] [Concomitant]
     Active Substance: DOCONEXENT\ICOSAPENT
     Route: 048
  7. ESBRIET [Suspect]
     Active Substance: PIRFENIDONE
     Indication: IDIOPATHIC PULMONARY FIBROSIS
     Dosage: TAKES 1 TABLET OF 801 MG 3 TIMES DAILY WITH FOOD ;ONGOING: YES
     Route: 048
     Dates: start: 2017

REACTIONS (2)
  - Paraesthesia [Not Recovered/Not Resolved]
  - Hypoaesthesia [Unknown]
